FAERS Safety Report 9232507 (Version 1)
Quarter: 2013Q2

REPORT INFORMATION
  Report Type: Spontaneous
  Country: US (occurrence: US)
  Receive Date: 20130416
  Receipt Date: 20130416
  Transmission Date: 20140414
  Serious: No
  Sender: FDA-Public Use
  Company Number: US-BIOGENIDEC-2013BI033334

PATIENT
  Sex: Female

DRUGS (1)
  1. AVONEX [Suspect]
     Indication: MULTIPLE SCLEROSIS
     Route: 030
     Dates: start: 20000717

REACTIONS (7)
  - Irritability [Unknown]
  - Disability [Unknown]
  - Injection site induration [Unknown]
  - Frustration [Unknown]
  - Migraine [Unknown]
  - Stress [Unknown]
  - Decreased appetite [Unknown]
